FAERS Safety Report 8206068-9 (Version None)
Quarter: 2012Q1

REPORT INFORMATION
  Report Type: 
  Country: None (occurrence: None)
  Receive Date: 20120313
  Receipt Date: 20120301
  Transmission Date: 20120608
  Serious: Yes (Hospitalization, Other)
  Sender: FDA-Public Use
  Company Number: US-ELI_LILLY_AND_COMPANY-US201105008774

PATIENT
  Sex: Male

DRUGS (5)
  1. FORTEO [Suspect]
     Dosage: 20 UG, QD
     Route: 065
     Dates: start: 20110613
  2. NORCO [Concomitant]
  3. ANALGESICS [Concomitant]
     Indication: PAIN
  4. OXYCONTIN [Concomitant]
  5. FORTEO [Suspect]
     Indication: OSTEOPOROSIS
     Dosage: 20 UG, QD
     Route: 065
     Dates: start: 20110518, end: 20110601

REACTIONS (10)
  - LIP SWELLING [None]
  - SWOLLEN TONGUE [None]
  - PAIN [None]
  - HIP FRACTURE [None]
  - ROAD TRAFFIC ACCIDENT [None]
  - DYSPNOEA [None]
  - NAUSEA [None]
  - HOSPITALISATION [None]
  - PRURITUS [None]
  - SLEEP DISORDER DUE TO A GENERAL MEDICAL CONDITION [None]
